FAERS Safety Report 24422032 (Version 1)
Quarter: 2024Q4

REPORT INFORMATION
  Report Type: Spontaneous
  Country: US (occurrence: US)
  Receive Date: 20241010
  Receipt Date: 20241010
  Transmission Date: 20250115
  Serious: Yes (Life-Threatening, Hospitalization)
  Sender: ACCORD
  Company Number: US-MLMSERVICE-20240923-PI203929-00295-1

PATIENT
  Age: 56 Year
  Sex: Female

DRUGS (2)
  1. SERTRALINE [Suspect]
     Active Substance: SERTRALINE HYDROCHLORIDE
     Indication: Product used for unknown indication
  2. COLCHICINE [Suspect]
     Active Substance: COLCHICINE
     Indication: Viral pericarditis

REACTIONS (5)
  - Acute kidney injury [Recovering/Resolving]
  - Shock [Recovered/Resolved]
  - Intentional overdose [Unknown]
  - Metabolic acidosis [Recovered/Resolved]
  - Suicide attempt [Unknown]
